FAERS Safety Report 9265006 (Version 4)
Quarter: 2013Q2

REPORT INFORMATION
  Report Type: Spontaneous
  Country: US (occurrence: None)
  Receive Date: 20130425
  Receipt Date: 20130529
  Transmission Date: 20140414
  Serious: Yes (Hospitalization)
  Sender: FDA-Public Use
  Company Number: AUR-APL-2013-03228

PATIENT
  Age: 61 Year
  Sex: Female
  Weight: 123 kg

DRUGS (23)
  1. TOPIRAMATE [Suspect]
     Indication: DIABETIC NEUROPATHY
     Dosage: 75 MG (25 MG, 3 IN 1 D)
     Route: 048
     Dates: start: 2000, end: 20130321
  2. METFORMIN (METFORMIN) [Suspect]
     Indication: TYPE 2 DIABETES MELLITUS
     Dosage: QAM
     Route: 048
     Dates: start: 201102, end: 20130321
  3. CIPRO [Suspect]
     Indication: DYSURIA
     Dosage: 1000 MG (500 MG, 2 IN 1 D)
     Route: 048
     Dates: start: 20130313, end: 20130319
  4. MACROBID (NITROFURANTOIN) [Suspect]
     Indication: URINARY TRACT INFECTION
     Dosage: 200 MG (100 MG, 2 IN 1 D)
     Route: 048
     Dates: start: 20130201, end: 20130208
  5. NEXIUM (ESOMEPRAZOLE MAGNESIUM) [Concomitant]
  6. CALCITROL (CALCITROL /00508501/) [Concomitant]
  7. SPIRIVA (TIOTROPIUM BROMIDE) [Concomitant]
  8. ADVAIR (SERETIDE /01420901/) [Concomitant]
  9. FLUTICASONE (FLUTICASONE) [Concomitant]
  10. AMITRIPTYLINE (AMITRIPTYLINE) [Concomitant]
  11. SINGULAIR [Concomitant]
  12. OXYBUTYNIN (OXYBUTYNIN) [Concomitant]
  13. EXTRA STRENGTH TYLENOL (PARACETAMOL) [Concomitant]
  14. FUROSEMIDE (FUROSEMIDE) [Concomitant]
  15. VITAMIN B12 (CYANOCOBALAMIN) [Concomitant]
  16. CALCIUM (CALCIUM) [Concomitant]
  17. CHELATED IRON (IRON) [Concomitant]
  18. CRANBERRY (VACCINIUM MARCOCARPON) [Concomitant]
  19. VOLTAREN (DICLOFENAC) [Concomitant]
  20. VENTOLIN HFA (SALBUTAMOL SULFATE) [Concomitant]
  21. LEVOTHYROXINE (LEVOTHYROXINE) [Concomitant]
  22. VITAMINS [Concomitant]
  23. FISH OIL (FISH OIL) [Concomitant]

REACTIONS (15)
  - Decreased appetite [None]
  - Somnolence [None]
  - Generalised oedema [None]
  - Metabolic acidosis [None]
  - Renal tubular necrosis [None]
  - Haemodialysis [None]
  - Pyrexia [None]
  - Renal failure acute [None]
  - Hydronephrosis [None]
  - Blood potassium increased [None]
  - Dizziness [None]
  - Dizziness [None]
  - Cardiorenal syndrome [None]
  - Nephrolithiasis [None]
  - Calculus ureteric [None]
